FAERS Safety Report 7379909-5 (Version None)
Quarter: 2011Q1

REPORT INFORMATION
  Report Type: 
  Country: None (occurrence: None)
  Receive Date: 20110318
  Receipt Date: 20110311
  Transmission Date: 20110831
  Serious: Yes (Other)
  Sender: FDA-Public Use
  Company Number: DE-1185357

PATIENT
  Sex: Female

DRUGS (2)
  1. TRAVATAN [Suspect]
     Dosage: (OPHTHALMIC)
     Route: 047
  2. EMBOLEX [Concomitant]

REACTIONS (1)
  - INTRA-ABDOMINAL HAEMORRHAGE [None]
